FAERS Safety Report 4760241-0 (Version None)
Quarter: 2005Q3

REPORT INFORMATION
  Report Type: 
  Country: None (occurrence: None)
  Receive Date: 20050902
  Receipt Date: 20050822
  Transmission Date: 20060218
  Serious: Yes (Other)
  Sender: FDA-Public Use
  Company Number: US-ROCHE-415133

PATIENT
  Age: 58 Year
  Sex: Male
  Weight: 61.7 kg

DRUGS (2)
  1. XELODA [Suspect]
     Indication: COLORECTAL CANCER
     Route: 048
  2. XELODA [Suspect]
     Route: 048
     Dates: start: 20050817

REACTIONS (2)
  - HAEMATURIA [None]
  - NAUSEA [None]
